FAERS Safety Report 13256401 (Version 2)
Quarter: 2017Q1

REPORT INFORMATION
  Report Type: Spontaneous
  Country: US (occurrence: US)
  Receive Date: 20170221
  Receipt Date: 20170306
  Transmission Date: 20170428
  Serious: No
  Sender: FDA-Public Use
  Company Number: US-HORIZON-PEN-0067-2017

PATIENT
  Age: 83 Year
  Sex: Female

DRUGS (4)
  1. PENNSAID [Suspect]
     Active Substance: DICLOFENAC SODIUM
     Indication: BACK PAIN
     Dosage: 1-2 PUMPS 3-4 TIMES DAILY
  2. GABAPENTIN. [Concomitant]
     Active Substance: GABAPENTIN
     Indication: NEURALGIA
  3. PIROXICAM. [Concomitant]
     Active Substance: PIROXICAM
  4. BEZONATATE [Concomitant]

REACTIONS (3)
  - Product contamination [Unknown]
  - Rash [Unknown]
  - Off label use [Unknown]
